FAERS Safety Report 9421947 (Version 2)
Quarter: 2013Q3

REPORT INFORMATION
  Report Type: Spontaneous
  Country: US (occurrence: US)
  Receive Date: 20130726
  Receipt Date: 20130806
  Transmission Date: 20140515
  Serious: No
  Sender: FDA-Public Use
  Company Number: US-PFIZER INC-2013078323

PATIENT
  Age: 43 Year
  Sex: Female

DRUGS (5)
  1. LYRICA [Suspect]
     Indication: FIBROMYALGIA
     Dosage: 150 MG, 3X/DAY
  2. CLONAZEPAM [Concomitant]
     Dosage: UNK
  3. SHARK-LIVER OIL [Concomitant]
     Dosage: UNK
  4. AMBIEN [Concomitant]
     Dosage: UNK
  5. SYNTHROID [Concomitant]
     Dosage: UNK

REACTIONS (2)
  - Off label use [Unknown]
  - Pain [Unknown]
